FAERS Safety Report 7506047-0 (Version None)
Quarter: 2011Q2

REPORT INFORMATION
  Report Type: 
  Country: None (occurrence: None)
  Receive Date: 20110526
  Receipt Date: 20110524
  Transmission Date: 20111010
  Serious: Yes (Hospitalization)
  Sender: FDA-Public Use
  Company Number: FR-ROCHE-775170

PATIENT
  Sex: Male

DRUGS (7)
  1. GENTAMYCIN SULFATE [Concomitant]
     Dates: start: 20110419, end: 20110421
  2. ROCEPHIN [Suspect]
     Route: 042
     Dates: start: 20110417
  3. ROCEPHIN [Suspect]
     Route: 058
     Dates: start: 20110421
  4. LOVENOX [Concomitant]
     Route: 058
     Dates: start: 20110417
  5. FLAGYL [Concomitant]
     Route: 048
     Dates: start: 20110417, end: 20110419
  6. ACETAMINOPHEN [Concomitant]
     Indication: SKIN NECROSIS
     Route: 042
  7. ALUMINUM HYDROXIDE AND MAGNESIUM TRISILICATE [Concomitant]
     Dosage: 3 SACHETS

REACTIONS (1)
  - INJECTION SITE HAEMATOMA [None]
